FAERS Safety Report 15284569 (Version 1)
Quarter: 2018Q3

REPORT INFORMATION
  Report Type: Spontaneous
  Country: US (occurrence: US)
  Receive Date: 20180801
  Receipt Date: 20180801
  Transmission Date: 20181010
  Serious: No
  Sender: FDA-Public Use
  Company Number: None

PATIENT
  Age: 80 Year
  Sex: Male

DRUGS (2)
  1. ACETAMINOPHEN/HYDROCODONE [Suspect]
     Active Substance: ACETAMINOPHEN\HYDROCODONE
     Indication: PAIN
     Dates: start: 20180207
  2. METHADONE [Suspect]
     Active Substance: METHADONE HYDROCHLORIDE
     Indication: PAIN
     Route: 048
     Dates: start: 20180207

REACTIONS (7)
  - Syncope [None]
  - Cough [None]
  - Confusional state [None]
  - Sedation [None]
  - Blood creatinine increased [None]
  - Wheezing [None]
  - Blood urea increased [None]

NARRATIVE: CASE EVENT DATE: 20180403
